FAERS Safety Report 4516699-5 (Version None)
Quarter: 2004Q4

REPORT INFORMATION
  Report Type: 
  Country: None (occurrence: None)
  Receive Date: 20041029
  Receipt Date: 20040824
  Transmission Date: 20050328
  Serious: No
  Sender: FDA-Public Use
  Company Number: 2004-119807-NL

PATIENT
  Age: 36 Year
  Sex: Female
  Weight: 79.5 kg

DRUGS (1)
  1. NUVARING [Suspect]
     Indication: CONTRACEPTION
     Dosage: DF DAILY VAGINAL
     Route: 067
     Dates: start: 20040501

REACTIONS (5)
  - DYSPAREUNIA [None]
  - GENITAL PRURITUS FEMALE [None]
  - VAGINAL CONTRACEPTIVE DEVICE EXPELLED [None]
  - VAGINAL PAIN [None]
  - VULVOVAGINAL DISCOMFORT [None]
